FAERS Safety Report 11027625 (Version 1)
Quarter: 2015Q2

REPORT INFORMATION
  Report Type: Spontaneous
  Country: US (occurrence: US)
  Receive Date: 20150414
  Receipt Date: 20150414
  Transmission Date: 20150821
  Serious: No
  Sender: FDA-Public Use
  Company Number: US-PFIZER INC-2015125681

PATIENT
  Sex: Female

DRUGS (5)
  1. METHOTREXATE SODIUM. [Suspect]
     Active Substance: METHOTREXATE SODIUM
  2. NAPROXEN SODIUM. [Suspect]
     Active Substance: NAPROXEN SODIUM
  3. IMURAN [Suspect]
     Active Substance: AZATHIOPRINE
  4. AZULFIDINE [Suspect]
     Active Substance: SULFASALAZINE
  5. TE ANATOXAL [Suspect]
     Active Substance: TETANUS TOXOIDS

REACTIONS (1)
  - Drug hypersensitivity [Unknown]
